FAERS Safety Report 5333410-9 (Version None)
Quarter: 2007Q2

REPORT INFORMATION
  Report Type: 
  Country: None (occurrence: None)
  Receive Date: 20070522
  Receipt Date: 20070522
  Transmission Date: 20071010
  Serious: No
  Sender: FDA-Public Use
  Company Number: None

PATIENT
  Age: 60 Year
  Sex: Male

DRUGS (3)
  1. KETOROLAC TROMETHAMINE [Suspect]
     Indication: PAIN
     Dosage: 60MG ONCE IM
     Route: 030
     Dates: start: 20061125, end: 20061125
  2. KETOROLAC TROMETHAMINE [Suspect]
     Indication: PHARYNGITIS
     Dosage: 60MG ONCE IM
     Route: 030
     Dates: start: 20061125, end: 20061125
  3. PENICILLIN [Suspect]
     Dosage: 1.2MILLIONUNITS ONCE IM
     Route: 030

REACTIONS (2)
  - FLUSHING [None]
  - OEDEMA [None]
